FAERS Safety Report 16874528 (Version 3)
Quarter: 2022Q2

REPORT INFORMATION
  Report Type: Spontaneous
  Country: US (occurrence: None)
  Receive Date: 20191001
  Receipt Date: 20220413
  Transmission Date: 20220721
  Serious: Yes (Hospitalization, Other)
  Sender: FDA-Public Use
  Company Number: 2019SF36585

PATIENT
  Age: 9238 Day
  Sex: Female
  Weight: 124.7 kg

DRUGS (52)
  1. FARXIGA [Suspect]
     Active Substance: DAPAGLIFLOZIN PROPANEDIOL
     Indication: Type 2 diabetes mellitus
     Route: 048
     Dates: start: 20170824
  2. FARXIGA [Suspect]
     Active Substance: DAPAGLIFLOZIN PROPANEDIOL
     Indication: Type 2 diabetes mellitus
     Route: 048
     Dates: start: 20170823
  3. FARXIGA [Suspect]
     Active Substance: DAPAGLIFLOZIN PROPANEDIOL
     Indication: Type 2 diabetes mellitus
     Dosage: GENERIC
     Route: 048
     Dates: start: 20180905
  4. ZOSYN [Concomitant]
     Active Substance: PIPERACILLIN SODIUM\TAZOBACTAM SODIUM
  5. VANCOMYCIN [Concomitant]
     Active Substance: VANCOMYCIN
  6. HEPARIN [Concomitant]
     Active Substance: HEPARIN SODIUM
  7. ASCORBIC ACID [Concomitant]
     Active Substance: ASCORBIC ACID
  8. FLUCONAZOLE [Concomitant]
     Active Substance: FLUCONAZOLE
  9. DEXTROSE [Concomitant]
     Active Substance: DEXTROSE
  10. CLINDAMYCIN [Concomitant]
     Active Substance: CLINDAMYCIN
  11. OXYCODONE [Concomitant]
     Active Substance: OXYCODONE
  12. SODIUM CHLORIDE [Concomitant]
     Active Substance: SODIUM CHLORIDE
  13. ONDANSETRON [Concomitant]
     Active Substance: ONDANSETRON
  14. TAZOBACTAM [Concomitant]
     Active Substance: TAZOBACTAM
  15. ALBUMIN HUMAN [Concomitant]
     Active Substance: ALBUMIN HUMAN
  16. DIPHENHYDRAMINE [Concomitant]
     Active Substance: DIPHENHYDRAMINE
  17. NALOXONE [Concomitant]
     Active Substance: NALOXONE
  18. HYDROMORPHONE [Concomitant]
     Active Substance: HYDROMORPHONE
  19. GLYCOPYRROLATE [Concomitant]
     Active Substance: GLYCOPYRROLATE
  20. PROPOFOL [Concomitant]
     Active Substance: PROPOFOL
  21. MIDAZOLAM [Concomitant]
     Active Substance: MIDAZOLAM
  22. ROCURONIUM [Concomitant]
     Active Substance: ROCURONIUM BROMIDE
  23. SUCCINYLCHOLINE [Concomitant]
     Active Substance: SUCCINYLCHOLINE
  24. AMPICILLIN [Concomitant]
     Active Substance: AMPICILLIN
  25. POLYETHYLENE GLYCOL [Concomitant]
     Active Substance: POLYETHYLENE GLYCOL
  26. ATROPINE [Concomitant]
     Active Substance: ATROPINE
  27. ACETAMINOPHEN [Concomitant]
     Active Substance: ACETAMINOPHEN
  28. FENTANYL [Concomitant]
     Active Substance: FENTANYL
  29. MEPERIDINE [Concomitant]
     Active Substance: MEPERIDINE
  30. PROMETHAZINE [Concomitant]
     Active Substance: PROMETHAZINE HYDROCHLORIDE
  31. METOCLOPRAMIDE [Concomitant]
     Active Substance: METOCLOPRAMIDE
  32. ATORVASTATIN [Concomitant]
     Active Substance: ATORVASTATIN
  33. LISINOPRIL [Concomitant]
     Active Substance: LISINOPRIL
  34. METFORMIN [Concomitant]
     Active Substance: METFORMIN HYDROCHLORIDE
  35. VALTREX [Concomitant]
     Active Substance: VALACYCLOVIR HYDROCHLORIDE
  36. KETOROLAC [Concomitant]
     Active Substance: KETOROLAC TROMETHAMINE
  37. PROCHLORPERAZINE [Concomitant]
     Active Substance: PROCHLORPERAZINE
  38. PHENTERMINE [Concomitant]
     Active Substance: PHENTERMINE
  39. CYCLOBENZAPRINE [Concomitant]
     Active Substance: CYCLOBENZAPRINE
     Route: 048
     Dates: start: 20180918
  40. GLIPIZIDE [Concomitant]
     Active Substance: GLIPIZIDE
     Route: 048
     Dates: start: 20160907
  41. AZITHROMYCIN [Concomitant]
     Active Substance: AZITHROMYCIN
  42. JANUVIA [Concomitant]
     Active Substance: SITAGLIPTIN PHOSPHATE
  43. PHENTERMINE [Concomitant]
     Active Substance: PHENTERMINE
  44. CIPROFLOXACIN [Concomitant]
     Active Substance: CIPROFLOXACIN
  45. IBUPROFEN [Concomitant]
     Active Substance: IBUPROFEN
  46. ENOXAPARIN [Concomitant]
     Active Substance: ENOXAPARIN
  47. FERROUS SULFATE [Concomitant]
     Active Substance: FERROUS SULFATE
  48. OZEMPIC [Concomitant]
     Active Substance: SEMAGLUTIDE
  49. PREDNISONE [Concomitant]
     Active Substance: PREDNISONE
  50. NORETHINDRONE [Concomitant]
     Active Substance: NORETHINDRONE
     Dates: start: 20210927
  51. LIDOCAINE [Concomitant]
     Active Substance: LIDOCAINE
  52. PIPERACILLIN [Concomitant]
     Active Substance: PIPERACILLIN

REACTIONS (6)
  - Fournier^s gangrene [Unknown]
  - Sepsis [Unknown]
  - Necrotising fasciitis [Unknown]
  - Necrotising soft tissue infection [Unknown]
  - Groin infection [Unknown]
  - Soft tissue infection [Unknown]

NARRATIVE: CASE EVENT DATE: 20170920
